FAERS Safety Report 4504392-4 (Version None)
Quarter: 2004Q4

REPORT INFORMATION
  Report Type: 
  Country: None (occurrence: None)
  Receive Date: 20041118
  Receipt Date: 20041102
  Transmission Date: 20050328
  Serious: Yes (Life-Threatening)
  Sender: FDA-Public Use
  Company Number: JP-ROCHE-385401

PATIENT
  Age: 56 Year
  Sex: Male

DRUGS (2)
  1. CELLCEPT [Suspect]
     Route: 048
     Dates: start: 20040615, end: 20041022
  2. CYCLOSPORINE [Concomitant]
     Route: 048

REACTIONS (1)
  - CARDIAC FAILURE [None]
